FAERS Safety Report 5516899-1 (Version None)
Quarter: 2007Q4

REPORT INFORMATION
  Report Type: 
  Country: None (occurrence: None)
  Receive Date: 20071114
  Receipt Date: 20071105
  Transmission Date: 20080405
  Serious: Yes (Hospitalization)
  Sender: FDA-Public Use
  Company Number: FR-ASTRAZENECA-2007CG01196

PATIENT
  Age: 15076 Day
  Sex: Female

DRUGS (12)
  1. INEXIUM [Suspect]
     Route: 048
     Dates: start: 20060703, end: 20060905
  2. MICROPAKINE [Concomitant]
     Route: 048
     Dates: start: 20060703, end: 20060723
  3. URBANYL [Concomitant]
     Route: 048
     Dates: start: 20060703, end: 20060905
  4. IMOVANE [Concomitant]
     Route: 048
     Dates: start: 20060703, end: 20060723
  5. ACETAMINOPHEN [Concomitant]
     Route: 048
     Dates: start: 20060703, end: 20060723
  6. FRAXIPARINE [Concomitant]
     Dates: start: 20060703
  7. RADIOTHERAPY [Concomitant]
     Dates: start: 20060725, end: 20060806
  8. RADIOTHERAPY [Concomitant]
     Dates: start: 20061010
  9. TEMODAL [Concomitant]
     Dates: start: 20060725, end: 20060806
  10. TEMODAL [Concomitant]
     Dates: start: 20060101
  11. KEPPRA [Concomitant]
     Dates: start: 20060727, end: 20060806
  12. BACTRIM [Concomitant]
     Indication: ANTIFUNGAL PROPHYLAXIS
     Dates: start: 20060726, end: 20060806

REACTIONS (1)
  - DRUG RASH WITH EOSINOPHILIA AND SYSTEMIC SYMPTOMS [None]
